FAERS Safety Report 6701869-8 (Version None)
Quarter: 2010Q2

REPORT INFORMATION
  Report Type: 
  Country: None (occurrence: None)
  Receive Date: 20100429
  Receipt Date: 20100426
  Transmission Date: 20101027
  Serious: Yes (Death)
  Sender: FDA-Public Use
  Company Number: NL-WYE-G06029410

PATIENT
  Age: 69 Year
  Sex: Female
  Weight: 106 kg

DRUGS (6)
  1. EFFEXOR XR [Interacting]
     Indication: DEPRESSIVE SYMPTOM
     Dates: start: 20090101
  2. DROPERIDOL [Suspect]
     Indication: AGITATION
     Dosage: 1 DOSE
     Dates: start: 20091111, end: 20091111
  3. DROPERIDOL [Suspect]
     Indication: CONFUSIONAL STATE
  4. SUFENTA PRESERVATIVE FREE [Suspect]
     Indication: SURGERY
     Dosage: 60 MICROGRAMS
     Dates: start: 20091111, end: 20091111
  5. METHYLENE BLUE [Interacting]
     Indication: SURGERY
     Dosage: UNK
     Route: 042
     Dates: start: 20091111, end: 20091111
  6. KYTRIL [Suspect]
     Indication: NAUSEA
     Dosage: 1 MG
     Dates: start: 20091111, end: 20091111

REACTIONS (2)
  - DRUG INTERACTION [None]
  - SEROTONIN SYNDROME [None]
